FAERS Safety Report 5141527-7 (Version None)
Quarter: 2006Q4

REPORT INFORMATION
  Report Type: 
  Country: None (occurrence: None)
  Receive Date: 20061026
  Receipt Date: 20061016
  Transmission Date: 20070319
  Serious: Yes (Other)
  Sender: FDA-Public Use
  Company Number: GXKR2006US06473

PATIENT
  Age: 18 Year
  Sex: Female

DRUGS (8)
  1. VINCRISTINE [Suspect]
     Indication: NEUROECTODERMAL NEOPLASM
     Dosage: 1.5 MG/M2, 2 CYCLES A MONTH, DAY 0
  2. CARBOPLATIN [Suspect]
     Dosage: 500 MG/M2, DAYS 8.7,6, INTRAVENOUS
     Route: 042
  3. ETOPOSIDE [Suspect]
     Dosage: 250 MG/M2, DAYS 5,4,3
  4. CYCLOPHOSPHAMIDE [Suspect]
     Indication: NEUROECTODERMAL NEOPLASM
     Dosage: 2100 MG/M2, DAYS 0 AND 1, INTRAVENOUS
     Route: 042
  5. GRANULOCYTE COLONY STIMULATING FACTOR (GRANULOCYTE COLONY STIMULATING [Suspect]
     Dosage: 5 UG/KG, QD
  6. RADIATION THERAPY (NO INGREDIENTS/SUBSTANCES) [Suspect]
     Dosage: SEE IMAGE
  7. THIOTEPA [Suspect]
     Dosage: 300 MG/M2, DAYS 5,4,3
  8. ACYCLOVIR [Concomitant]

REACTIONS (8)
  - CSF TEST ABNORMAL [None]
  - DRUG INEFFECTIVE [None]
  - FAECAL INCONTINENCE [None]
  - HERPES ZOSTER [None]
  - MYELITIS [None]
  - SENSORY DISTURBANCE [None]
  - SPINAL CORD DISORDER [None]
  - URINARY INCONTINENCE [None]
